FAERS Safety Report 7089720-0 (Version None)
Quarter: 2010Q4

REPORT INFORMATION
  Report Type: 
  Country: None (occurrence: None)
  Receive Date: 20101108
  Receipt Date: 20100308
  Transmission Date: 20110411
  Serious: No
  Sender: FDA-Public Use
  Company Number: US-ABBOTT-10P-163-0632020-00

PATIENT
  Sex: Male
  Weight: 74.91 kg

DRUGS (5)
  1. TRICOR [Suspect]
     Indication: BLOOD TRIGLYCERIDES INCREASED
     Dates: start: 20100215, end: 20100301
  2. LIPITOR [Suspect]
     Indication: BLOOD TRIGLYCERIDES INCREASED
     Dates: end: 20100301
  3. ASPIRIN [Concomitant]
     Indication: PRODUCT USED FOR UNKNOWN INDICATION
  4. METOPROLOL [Concomitant]
     Indication: PRODUCT USED FOR UNKNOWN INDICATION
  5. UNKNONW ALLERGY MEDICATION [Concomitant]
     Indication: HYPERSENSITIVITY

REACTIONS (1)
  - HEPATIC ENZYME INCREASED [None]
